FAERS Safety Report 25866344 (Version 1)
Quarter: 2025Q3

REPORT INFORMATION
  Report Type: Spontaneous
  Country: US (occurrence: US)
  Receive Date: 20250930
  Receipt Date: 20250930
  Transmission Date: 20251020
  Serious: No
  Sender: ABBVIE
  Company Number: US-ABBVIE-6480509

PATIENT
  Age: 49 Year
  Sex: Female
  Weight: 149 kg

DRUGS (4)
  1. LILETTA [Suspect]
     Active Substance: LEVONORGESTREL
     Indication: Haemorrhage
     Route: 015
     Dates: start: 202504, end: 202505
  2. LILETTA [Suspect]
     Active Substance: LEVONORGESTREL
     Indication: Contraception
  3. LISINOPRIL [Concomitant]
     Active Substance: LISINOPRIL
     Indication: Hypertension
  4. VITAMIN D [Concomitant]
     Active Substance: VITAMIN D NOS
     Indication: Product used for unknown indication

REACTIONS (4)
  - Muscle spasms [Not Recovered/Not Resolved]
  - Uterine pain [Recovering/Resolving]
  - Abdominal pain [Not Recovered/Not Resolved]
  - Heavy menstrual bleeding [Not Recovered/Not Resolved]

NARRATIVE: CASE EVENT DATE: 20250401
